FAERS Safety Report 15971242 (Version 1)
Quarter: 2019Q1

REPORT INFORMATION
  Report Type: Spontaneous
  Country: IT (occurrence: IT)
  Receive Date: 20190215
  Receipt Date: 20190215
  Transmission Date: 20190418
  Serious: Yes (Other)
  Sender: FDA-Public Use
  Company Number: PHHY2019IT033366

PATIENT
  Age: 49 Year
  Sex: Female

DRUGS (3)
  1. TAXOL [Suspect]
     Active Substance: PACLITAXEL
     Indication: OVARIAN CANCER STAGE III
     Dosage: 300 MG, TOTAL
     Route: 041
     Dates: start: 20190107, end: 20190107
  2. CARBOPLATINO FERRER FARMA [Suspect]
     Active Substance: CARBOPLATIN
     Indication: OVARIAN CANCER STAGE III
     Dosage: 790 MG, TOTAL
     Route: 041
     Dates: start: 20190107, end: 20190107
  3. AVASTIN [Suspect]
     Active Substance: BEVACIZUMAB
     Indication: OVARIAN CANCER STAGE III
     Dosage: 1150 MG, TOTAL
     Route: 041
     Dates: start: 20190107, end: 20190111

REACTIONS (3)
  - Erythema [Recovered/Resolved]
  - Infusion related reaction [None]
  - Dyspnoea [Recovered/Resolved]

NARRATIVE: CASE EVENT DATE: 20190107
